FAERS Safety Report 4408601-1 (Version None)
Quarter: 2004Q3

REPORT INFORMATION
  Report Type: 
  Country: None (occurrence: None)
  Receive Date: 20040726
  Receipt Date: 20040726
  Transmission Date: 20050211
  Serious: Yes (Hospitalization)
  Sender: FDA-Public Use
  Company Number: None

PATIENT
  Sex: Female
  Weight: 53.5244 kg

DRUGS (9)
  1. TAXOTERE [Suspect]
     Indication: ENDOMETRIAL CANCER
     Dosage: 120 MG EVERY 21 DAYS IV
     Route: 042
     Dates: start: 20040524, end: 20040621
  2. OSI-774 250 MG [Suspect]
     Indication: ENDOMETRIAL CANCER
     Dosage: 250 MG QD FOR 15 DAYS PO
     Route: 048
     Dates: start: 20040525, end: 20040706
  3. MULTIVITAMIN [Concomitant]
  4. FOSAMAX [Concomitant]
  5. ATIVAN [Concomitant]
  6. DEXAMETHASONE [Concomitant]
  7. LORAZEPAM [Concomitant]
  8. CLEOCIN T-GEL [Concomitant]
  9. COMPAZINE [Concomitant]

REACTIONS (3)
  - DISEASE PROGRESSION [None]
  - PLEURITIC PAIN [None]
  - PULMONARY FIBROSIS [None]
